FAERS Safety Report 11923901 (Version 1)
Quarter: 2016Q1

REPORT INFORMATION
  Report Type: Report from Study
  Country: FR (occurrence: FR)
  Receive Date: 20160118
  Receipt Date: 20160118
  Transmission Date: 20160526
  Serious: Yes (Death)
  Sender: FDA-Public Use
  Company Number: FR-JNJFOC-20160109225

PATIENT
  Age: 71 Year
  Sex: Male
  Weight: 73 kg

DRUGS (4)
  1. BENDAMUSTINE HYDROCHLORIDE [Suspect]
     Active Substance: BENDAMUSTINE HYDROCHLORIDE
     Indication: HODGKIN^S DISEASE
     Dosage: UNKNOWN FREQUENCY
     Route: 042
     Dates: start: 20151218, end: 20151218
  2. DOXORUBICIN [Suspect]
     Active Substance: DOXORUBICIN
     Indication: LYMPHOMA
     Dosage: UNKNOWN FREQUENCY (POWDER)
     Route: 042
     Dates: start: 20151218, end: 20151218
  3. VELBE [Suspect]
     Active Substance: VINBLASTINE SULFATE
     Indication: LYMPHOMA
     Dosage: UNKNOWN FREQUENCY
     Route: 042
     Dates: start: 20151218, end: 20151218
  4. PREDNISONE. [Suspect]
     Active Substance: PREDNISONE
     Indication: LYMPHOMA
     Dosage: UNKNOWN FREQUENCY
     Route: 048
     Dates: start: 20151218, end: 20151222

REACTIONS (1)
  - Cardiogenic shock [Fatal]

NARRATIVE: CASE EVENT DATE: 20151228
